FAERS Safety Report 5635973-2 (Version None)
Quarter: 2008Q1

REPORT INFORMATION
  Report Type: 
  Country: None (occurrence: None)
  Receive Date: 20080224
  Receipt Date: 20080220
  Transmission Date: 20080703
  Serious: Yes (Death, Hospitalization)
  Sender: FDA-Public Use
  Company Number: PHHY2008JP01106

PATIENT
  Age: 69 Year
  Sex: Male
  Weight: 65 kg

DRUGS (5)
  1. WARFARIN SODIUM [Suspect]
     Dosage: 4.5 MG/DAY
     Route: 048
     Dates: start: 20041213
  2. ASPIRIN [Suspect]
     Dosage: 100 MG/DAY
     Route: 048
     Dates: start: 20061117
  3. FLUVASTATIN [Concomitant]
     Dosage: 20 MG
     Route: 048
     Dates: start: 20070208
  4. LANSOPRAZOLE [Concomitant]
     Dosage: 15 MG, UNK
     Route: 048
     Dates: start: 20061117
  5. DIOVAN [Suspect]
     Indication: HYPERTENSION
     Dosage: 80 MG QD
     Route: 048
     Dates: start: 20071217

REACTIONS (6)
  - BLOOD PRESSURE INCREASED [None]
  - BRAIN OEDEMA [None]
  - CEREBRAL HAEMORRHAGE [None]
  - HAEMATOMA [None]
  - LOSS OF CONSCIOUSNESS [None]
  - SURGERY [None]
